FAERS Safety Report 6700189-5 (Version None)
Quarter: 2010Q2

REPORT INFORMATION
  Report Type: 
  Country: None (occurrence: None)
  Receive Date: 20100426
  Receipt Date: 20091002
  Transmission Date: 20101027
  Serious: Yes (Other)
  Sender: FDA-Public Use
  Company Number: WAES 0910USA00384

PATIENT
  Age: 60 Year
  Sex: Male

DRUGS (2)
  1. SINGULAIR [Suspect]
     Indication: ASTHMA
     Dosage: 10 MG/DAILY/PO
     Route: 048
     Dates: start: 20040101, end: 20090901
  2. ADVAIR DISKUS 100/50 [Concomitant]

REACTIONS (3)
  - HEPATITIS [None]
  - JAUNDICE [None]
  - TRANSAMINASES INCREASED [None]
